FAERS Safety Report 9798158 (Version 2)
Quarter: 2014Q1

REPORT INFORMATION
  Report Type: Report from Study
  Country: US (occurrence: US)
  Receive Date: 20140106
  Receipt Date: 20140325
  Transmission Date: 20141002
  Serious: Yes (Hospitalization)
  Sender: FDA-Public Use
  Company Number: US-ROCHE-1325450

PATIENT
  Age: 57 Year
  Sex: Male
  Weight: 84.5 kg

DRUGS (15)
  1. RITUXIMAB [Suspect]
     Indication: PROTEINURIA
     Dosage: DATE OF MOST RECENT DOSE: 20/DEC/2013
     Route: 042
     Dates: start: 20130912
  2. VALGANCICLOVIR [Suspect]
     Indication: RENAL TRANSPLANT
     Route: 048
  3. PRADAXA [Concomitant]
  4. HYDRALAZINE [Concomitant]
  5. PROGRAF [Concomitant]
     Route: 065
  6. MYFORTIC [Concomitant]
     Route: 065
  7. NEXIUM [Concomitant]
  8. COREG [Concomitant]
     Route: 065
  9. AMLODIPINE [Concomitant]
  10. ASPIRIN [Concomitant]
  11. DAPSONE [Concomitant]
  12. FERROUS SULPHATE [Concomitant]
  13. FOLIC ACID [Concomitant]
  14. ZEMPLAR [Concomitant]
  15. LASIX [Concomitant]
     Route: 048

REACTIONS (2)
  - Blood creatinine increased [Unknown]
  - Pneumonia [Unknown]
